FAERS Safety Report 6015073-2 (Version None)
Quarter: 2008Q4

REPORT INFORMATION
  Report Type: 
  Country: None (occurrence: None)
  Receive Date: 20081218
  Receipt Date: 20081203
  Transmission Date: 20090506
  Serious: Yes (Hospitalization)
  Sender: FDA-Public Use
  Company Number: 14661

PATIENT
  Age: 42 Year
  Sex: Female
  Weight: 121.1104 kg

DRUGS (9)
  1. MORPHINE SULFATE [Suspect]
     Indication: PAIN
     Dosage: 120 MG BID ORALLY
     Route: 048
     Dates: start: 20080501
  2. MORPHINE SULFATE [Suspect]
     Indication: SPINAL OPERATION
     Dosage: 120 MG BID ORALLY
     Route: 048
     Dates: start: 20080501
  3. IBUPROPION [Concomitant]
  4. METFORMIN HCL [Concomitant]
  5. LIPITOR [Concomitant]
  6. SYNTHROID [Concomitant]
  7. ANTACID TAB [Concomitant]
  8. DICYCLOMINE [Concomitant]
  9. ONDANSETRON [Concomitant]

REACTIONS (20)
  - ABDOMINAL PAIN [None]
  - ABDOMINAL PAIN UPPER [None]
  - CHILLS [None]
  - CONSTIPATION [None]
  - DEHYDRATION [None]
  - DIARRHOEA [None]
  - DIVERTICULUM [None]
  - DIZZINESS [None]
  - DYSPNOEA [None]
  - FEELING COLD [None]
  - GASTROOESOPHAGEAL REFLUX DISEASE [None]
  - HAEMATOCHEZIA [None]
  - HAEMORRHOIDS [None]
  - HEPATIC STEATOSIS [None]
  - INFLUENZA LIKE ILLNESS [None]
  - NAUSEA [None]
  - PRODUCT QUALITY ISSUE [None]
  - PYREXIA [None]
  - VERTIGO [None]
  - VOMITING [None]
